FAERS Safety Report 6110326-1 (Version None)
Quarter: 2009Q1

REPORT INFORMATION
  Report Type: 
  Country: None (occurrence: None)
  Receive Date: 20090310
  Receipt Date: 20090226
  Transmission Date: 20090719
  Serious: Yes (Other)
  Sender: FDA-Public Use
  Company Number: IE-PFIZER INC-2009176814

PATIENT

DRUGS (1)
  1. PREGABALIN [Suspect]
     Route: 048

REACTIONS (2)
  - ABNORMAL DREAMS [None]
  - PSYCHOTIC DISORDER [None]
